FAERS Safety Report 4404518-7 (Version None)
Quarter: 2004Q3

REPORT INFORMATION
  Report Type: 
  Country: None (occurrence: None)
  Receive Date: 20040721
  Receipt Date: 20040721
  Transmission Date: 20050211
  Serious: Yes (Hospitalization)
  Sender: FDA-Public Use
  Company Number: None

PATIENT
  Age: 49 Year
  Sex: Male

DRUGS (8)
  1. IBUPROFEN [Suspect]
     Indication: TOOTHACHE
  2. ATENOLOL [Concomitant]
  3. LORATADINE [Concomitant]
  4. GEMFIBROZILE [Concomitant]
  5. HYDROCHOROTHAZOL [Concomitant]
  6. RANITINE [Concomitant]
  7. NIACIN [Concomitant]
  8. CLINDOMYCIN [Concomitant]

REACTIONS (2)
  - RENAL FAILURE ACUTE [None]
  - RENAL TUBULAR NECROSIS [None]
